FAERS Safety Report 4908512-9 (Version None)
Quarter: 2006Q1

REPORT INFORMATION
  Report Type: 
  Country: None (occurrence: None)
  Receive Date: 20060210
  Receipt Date: 20050812
  Transmission Date: 20060701
  Serious: No
  Sender: FDA-Public Use
  Company Number: US-GLAXOSMITHKLINE-A0570059A

PATIENT
  Age: 52 Year
  Sex: Male

DRUGS (3)
  1. PAXIL CR [Suspect]
     Dosage: 12.5MG PER DAY
     Route: 048
     Dates: start: 20050809
  2. KLONOPIN [Concomitant]
  3. ATENOLOL [Concomitant]

REACTIONS (1)
  - LIBIDO DECREASED [None]
